FAERS Safety Report 20984762 (Version 1)
Quarter: 2022Q2

REPORT INFORMATION
  Report Type: Spontaneous
  Country: US (occurrence: None)
  Receive Date: 20220621
  Receipt Date: 20220621
  Transmission Date: 20220721
  Serious: No
  Sender: FDA-Public Use
  Company Number: US-ROCHE-2860750

PATIENT
  Sex: Female

DRUGS (1)
  1. XELODA [Suspect]
     Active Substance: CAPECITABINE
     Indication: Anal cancer
     Dosage: 2 TIMES DAILY MONDAY THROUGH FRIDAY DURING RADIATION
     Route: 048
     Dates: start: 20210604

REACTIONS (3)
  - Pain [Unknown]
  - Thermal burn [Unknown]
  - Nausea [Unknown]
